FAERS Safety Report 6075117-9 (Version None)
Quarter: 2009Q1

REPORT INFORMATION
  Report Type: 
  Country: None (occurrence: None)
  Receive Date: 20090210
  Receipt Date: 20090210
  Transmission Date: 20090719
  Serious: No
  Sender: FDA-Public Use
  Company Number: None

PATIENT
  Age: 64 Year
  Sex: Male
  Weight: 107.05 kg

DRUGS (2)
  1. NIACIN [Suspect]
     Indication: HYPERLIPIDAEMIA
     Dosage: 1000 MG AT BEDTIME PO
     Route: 048
     Dates: start: 20080822, end: 20090209
  2. SIMVASTATIN [Suspect]
     Dosage: 20 MG AT BEDTIME PO
     Route: 048
     Dates: start: 20080822, end: 20090209

REACTIONS (3)
  - PRURITUS [None]
  - RASH [None]
  - URTICARIA [None]
